FAERS Safety Report 9291576 (Version 1)
Quarter: 2013Q2

REPORT INFORMATION
  Report Type: Spontaneous
  Country: FR (occurrence: FR)
  Receive Date: 20130515
  Receipt Date: 20130515
  Transmission Date: 20140414
  Serious: Yes (Hospitalization, Disabling)
  Sender: FDA-Public Use
  Company Number: FR-BAXTER-2013BAX017135

PATIENT
  Age: 45 Year
  Sex: Female

DRUGS (5)
  1. ENDOXAN 2000 MG, LYOPHILISAT POUR SOLUTION INJECTABLE [Suspect]
     Indication: BREAST CANCER
     Route: 042
     Dates: start: 20080709, end: 20080901
  2. FLUOROURACILE [Suspect]
     Indication: BREAST CANCER
     Route: 042
     Dates: start: 20080709, end: 20080901
  3. EPIRUBICINE [Suspect]
     Indication: BREAST CANCER
     Route: 042
     Dates: start: 20080709, end: 20080901
  4. TAXOTERE [Concomitant]
     Indication: BREAST CANCER
     Route: 042
     Dates: start: 20080922
  5. TAMOXIFENE [Concomitant]
     Indication: BREAST CANCER
     Route: 048

REACTIONS (1)
  - Fibromyalgia [Recovered/Resolved with Sequelae]
